FAERS Safety Report 9889427 (Version 1)
Quarter: 2014Q1

REPORT INFORMATION
  Report Type: Spontaneous
  Country: CA (occurrence: CA)
  Receive Date: 20140211
  Receipt Date: 20140211
  Transmission Date: 20141002
  Serious: Yes (Death)
  Sender: FDA-Public Use
  Company Number: PHHY2014CA013985

PATIENT
  Age: 4 Month
  Sex: Female

DRUGS (9)
  1. METHYLPREDNISOLONE [Suspect]
     Dosage: 20 MG/KG, PER DAY
     Route: 042
  2. CARBOPLATIN [Concomitant]
     Dosage: 17 MG/KG, PER DAY
  3. THIOTEPA [Concomitant]
     Dosage: 10 MG/KG, PER DAY
  4. VINCRISTINE [Concomitant]
     Route: 042
  5. ETOPOSIDE [Concomitant]
     Route: 042
  6. CYCLOPHOSPHAMIDE [Concomitant]
  7. CISPLATIN [Concomitant]
     Route: 042
  8. METHOTREXATE [Concomitant]
     Route: 042
  9. NITRIC OXIDE [Concomitant]

REACTIONS (3)
  - Pulmonary arteriopathy [Fatal]
  - Pulmonary arterial hypertension [Fatal]
  - Drug ineffective [Unknown]
